FAERS Safety Report 16279222 (Version 2)
Quarter: 2019Q2

REPORT INFORMATION
  Report Type: Report from Study
  Country: None (occurrence: US)
  Receive Date: 20190506
  Receipt Date: 20190621
  Transmission Date: 20190711
  Serious: Yes (Other)
  Sender: FDA-Public Use
  Company Number: US-ABBVIE-19K-163-2766637-00

PATIENT
  Sex: Female

DRUGS (2)
  1. HUMIRA [Suspect]
     Active Substance: ADALIMUMAB
     Route: 058
  2. HUMIRA [Suspect]
     Active Substance: ADALIMUMAB
     Indication: CROHN^S DISEASE
     Route: 058

REACTIONS (15)
  - Tendonitis [Unknown]
  - Diarrhoea [Unknown]
  - Fatigue [Unknown]
  - Fistula [Unknown]
  - Rheumatoid arthritis [Unknown]
  - Hypothyroidism [Unknown]
  - Therapeutic response shortened [Unknown]
  - Lethargy [Unknown]
  - Lactose intolerance [Unknown]
  - Flatulence [Unknown]
  - Hypertension [Unknown]
  - Hepatic steatosis [Unknown]
  - Trigger finger [Unknown]
  - Musculoskeletal stiffness [Unknown]
  - Rotator cuff syndrome [Unknown]
